FAERS Safety Report 20171961 (Version 1)
Quarter: 2021Q4

REPORT INFORMATION
  Report Type: Spontaneous
  Country: GB (occurrence: GB)
  Receive Date: 20211210
  Receipt Date: 20211210
  Transmission Date: 20220303
  Serious: No
  Sender: FDA-Public Use
  Company Number: GB-PFIZER INC-2020398305

PATIENT
  Age: 8 Year
  Sex: Female

DRUGS (4)
  1. GENOTROPIN [Suspect]
     Active Substance: SOMATROPIN
     Indication: Growth hormone deficiency
     Dosage: 0.7 MG, DAILY
     Route: 058
     Dates: start: 202009
  2. GENOTROPIN [Suspect]
     Active Substance: SOMATROPIN
     Dosage: UNK
     Dates: start: 2020
  3. GENOTROPIN [Suspect]
     Active Substance: SOMATROPIN
     Dosage: 0.4 MG
     Dates: start: 20210213, end: 20210213
  4. GENOTROPIN [Suspect]
     Active Substance: SOMATROPIN
     Dosage: 0.3 MG
     Dates: start: 20210406, end: 20210406

REACTIONS (6)
  - Device difficult to use [Unknown]
  - Incorrect dose administered [Unknown]
  - Drug dose omission by device [Unknown]
  - Device issue [Unknown]
  - Device leakage [Unknown]
  - Device breakage [Unknown]

NARRATIVE: CASE EVENT DATE: 20200101
